FAERS Safety Report 7177170-8 (Version None)
Quarter: 2010Q4

REPORT INFORMATION
  Report Type: 
  Country: None (occurrence: None)
  Receive Date: 20101215
  Receipt Date: 20101215
  Transmission Date: 20110411
  Serious: Yes (Other)
  Sender: FDA-Public Use
  Company Number: None

PATIENT
  Age: 74 Year
  Sex: Female

DRUGS (1)
  1. CATAPRES-TTS-3 [Suspect]
     Indication: HYPERTENSION
     Dosage: APPLY ONE PATCH WEEKLY
     Route: 062
     Dates: start: 20100201, end: 20101201

REACTIONS (1)
  - INCORRECT DOSE ADMINISTERED BY DEVICE [None]
